FAERS Safety Report 22122081 (Version 1)
Quarter: 2023Q1

REPORT INFORMATION
  Report Type: Report from Study
  Country: BR (occurrence: BR)
  Receive Date: 20230321
  Receipt Date: 20230321
  Transmission Date: 20230418
  Serious: Yes (Death, Other)
  Sender: FDA-Public Use
  Company Number: BR-GILEAD-2023-0620497

PATIENT

DRUGS (4)
  1. SOFOSBUVIR [Suspect]
     Active Substance: SOFOSBUVIR
     Indication: Hepatitis C
     Dosage: UNK
     Route: 065
  2. DACLATASVIR [Concomitant]
     Active Substance: DACLATASVIR
     Dosage: UNK
  3. DEXAMETHASONE [Concomitant]
     Active Substance: DEXAMETHASONE
  4. ATAZANAVIR [Concomitant]
     Active Substance: ATAZANAVIR

REACTIONS (2)
  - Death [Fatal]
  - Bradycardia [Unknown]
